FAERS Safety Report 6750270-X (Version None)
Quarter: 2010Q2

REPORT INFORMATION
  Report Type: 
  Country: None (occurrence: None)
  Receive Date: 20100601
  Receipt Date: 20100524
  Transmission Date: 20101027
  Serious: Yes (Hospitalization)
  Sender: FDA-Public Use
  Company Number: ES-PFIZER INC-2010064742

PATIENT
  Age: 73 Year
  Sex: Male

DRUGS (5)
  1. NORVASC [Suspect]
     Indication: TYPE 2 DIABETES MELLITUS
     Dosage: 20 MG, 1X/DAY
     Route: 048
     Dates: start: 20070101
  2. SEGURIL [Interacting]
     Indication: HYPERTENSION
     Dosage: 40 MG, 1X/DAY
     Route: 048
     Dates: start: 20081024, end: 20081106
  3. MICARDIS HCT [Interacting]
     Indication: THROMBOSIS PROPHYLAXIS
     Dosage: UNK
     Route: 048
     Dates: start: 20081024, end: 20081106
  4. EMCONCOR [Interacting]
     Indication: ISCHAEMIC CARDIOMYOPATHY
     Dosage: 5 MG, 1X/DAY
     Route: 048
     Dates: start: 20060101
  5. ACETYLSALICYLIC ACID [Interacting]
     Indication: HYPERTENSION
     Dosage: 100 MG, 1X/DAY
     Route: 048

REACTIONS (4)
  - DRUG INTERACTION [None]
  - HYPERKALAEMIA [None]
  - NODAL RHYTHM [None]
  - RENAL FAILURE ACUTE [None]
